FAERS Safety Report 6775860-X (Version None)
Quarter: 2010Q2

REPORT INFORMATION
  Report Type: 
  Country: None (occurrence: None)
  Receive Date: 20100617
  Receipt Date: 20100607
  Transmission Date: 20101027
  Serious: Yes (Hospitalization, Other)
  Sender: FDA-Public Use
  Company Number: US-ELI_LILLY_AND_COMPANY-US201006002130

PATIENT
  Age: 80 Year
  Sex: Female

DRUGS (15)
  1. GEMZAR [Suspect]
     Indication: PANCREATIC CARCINOMA
  2. FRAGMIN [Concomitant]
     Indication: PULMONARY EMBOLISM
     Dosage: 125000 IU, OTHER
     Route: 058
     Dates: start: 20100414, end: 20100401
  3. FRAGMIN [Concomitant]
     Dosage: 10000 IU, OTHER
     Route: 058
     Dates: start: 20100427
  4. FLUOROURACIL [Concomitant]
     Indication: PANCREATIC CARCINOMA
  5. OXALIPLATIN [Concomitant]
     Indication: PANCREATIC CARCINOMA
  6. FOLINIC ACID [Concomitant]
     Indication: PANCREATIC CARCINOMA
  7. ENALAPRIL MALEATE [Concomitant]
  8. OXYBUTYN [Concomitant]
  9. HYDROCHLOROTHIAZIDE [Concomitant]
  10. GLIPIZIDE [Concomitant]
  11. XALATAN [Concomitant]
  12. FENTANYL [Concomitant]
  13. DILAUDID [Concomitant]
  14. DULCOLAX [Concomitant]
  15. LACTULOSE [Concomitant]

REACTIONS (3)
  - DEHYDRATION [None]
  - RENAL FAILURE [None]
  - WEIGHT DECREASED [None]
